FAERS Safety Report 6946630-4 (Version None)
Quarter: 2010Q3

REPORT INFORMATION
  Report Type: 
  Country: None (occurrence: None)
  Receive Date: 20100825
  Receipt Date: 20100818
  Transmission Date: 20110219
  Serious: Yes (Hospitalization)
  Sender: FDA-Public Use
  Company Number: 2010MA001842

PATIENT
  Age: 32 Year
  Sex: Female

DRUGS (3)
  1. CITALOPRAM HYDROBROMIDE [Suspect]
     Indication: MAJOR DEPRESSION
     Dosage: 40 MG; QD;
  2. MIRTAZAPINE [Concomitant]
  3. VITAMIN B-12 [Concomitant]

REACTIONS (3)
  - AUTOIMMUNE THROMBOCYTOPENIA [None]
  - RHEUMATOID FACTOR INCREASED [None]
  - VAGINAL HAEMORRHAGE [None]
